FAERS Safety Report 5362047-0 (Version None)
Quarter: 2007Q2

REPORT INFORMATION
  Report Type: 
  Country: None (occurrence: None)
  Receive Date: 20070619
  Receipt Date: 20070608
  Transmission Date: 20071010
  Serious: Yes (Other)
  Sender: FDA-Public Use
  Company Number: FR-AMGEN-US224797

PATIENT
  Age: 33 Year
  Sex: Male

DRUGS (1)
  1. ENBREL [Suspect]
     Indication: SAPHO SYNDROME
     Dosage: UNKNOWN
     Route: 058
     Dates: end: 20070201

REACTIONS (6)
  - ARTHRALGIA [None]
  - CONDITION AGGRAVATED [None]
  - PAROTID GLAND ENLARGEMENT [None]
  - PUSTULAR PSORIASIS [None]
  - SARCOIDOSIS [None]
  - SINUSITIS [None]
